FAERS Safety Report 14085794 (Version 1)
Quarter: 2017Q4

REPORT INFORMATION
  Report Type: Spontaneous
  Country: US (occurrence: US)
  Receive Date: 20171013
  Receipt Date: 20171013
  Transmission Date: 20180321
  Serious: Yes (Other)
  Sender: FDA-Public Use
  Company Number: US-TOLMAR, INC.-2017US013800

PATIENT
  Sex: Male

DRUGS (4)
  1. XTANDI [Concomitant]
     Active Substance: ENZALUTAMIDE
     Indication: PROSTATE CANCER
     Dosage: UNK UNK, DAILY
     Dates: start: 20170101
  2. XGEVA [Concomitant]
     Active Substance: DENOSUMAB
     Dosage: UNK
  3. EDEX [Concomitant]
     Active Substance: ALPROSTADIL
     Dosage: UNK
  4. ELIGARD [Suspect]
     Active Substance: LEUPROLIDE ACETATE
     Indication: PROSTATE CANCER
     Dosage: UNK
     Route: 065

REACTIONS (15)
  - Paraesthesia [Unknown]
  - Musculoskeletal discomfort [Unknown]
  - Gynaecomastia [Not Recovered/Not Resolved]
  - Haematuria [Unknown]
  - Hypoaesthesia [Unknown]
  - Post micturition dribble [Unknown]
  - Nocturia [Unknown]
  - Breast pain [Recovered/Resolved]
  - Prostatic specific antigen increased [Unknown]
  - Pain in extremity [Recovered/Resolved]
  - Night sweats [Unknown]
  - Fatigue [Recovered/Resolved]
  - Prostate cancer [Unknown]
  - Asthenia [Unknown]
  - Erectile dysfunction [Unknown]
